FAERS Safety Report 7328755-7 (Version None)
Quarter: 2011Q1

REPORT INFORMATION
  Report Type: 
  Country: None (occurrence: None)
  Receive Date: 20110303
  Receipt Date: 20110218
  Transmission Date: 20110831
  Serious: Yes (Other)
  Sender: FDA-Public Use
  Company Number: PHHY2010CN75058

PATIENT
  Age: 58 Year
  Sex: Female

DRUGS (2)
  1. OCTREOTIDE ACETATE [Suspect]
     Dosage: 0.05 MG, TID
     Route: 058
  2. OCTREOTIDE ACETATE [Suspect]
     Indication: CHYLOTHORAX
     Dosage: 0.1 MG, TID
     Route: 058

REACTIONS (5)
  - DIARRHOEA [None]
  - BLOOD BILIRUBIN INCREASED [None]
  - HYPOGLYCAEMIA [None]
  - PLEURAL EFFUSION [None]
  - ABDOMINAL DISTENSION [None]
